FAERS Safety Report 8920499 (Version 3)
Quarter: 2013Q2

REPORT INFORMATION
  Report Type: Spontaneous
  Country: FR (occurrence: FR)
  Receive Date: 20121121
  Receipt Date: 20130426
  Transmission Date: 20140414
  Serious: Yes (Hospitalization)
  Sender: FDA-Public Use
  Company Number: FR-ROCHE-1155078

PATIENT
  Age: 60 Year
  Sex: Female

DRUGS (9)
  1. ROACTEMRA [Suspect]
     Indication: PSORIATIC ARTHROPATHY
     Route: 042
     Dates: start: 20121005, end: 20121005
  2. ROACTEMRA [Suspect]
     Indication: OFF LABEL USE
     Route: 042
     Dates: start: 201110
  3. ROACTEMRA [Suspect]
     Route: 042
     Dates: start: 20130408
  4. REMICADE [Suspect]
     Indication: PSORIATIC ARTHROPATHY
     Route: 042
     Dates: start: 20121005, end: 20121005
  5. REMICADE [Suspect]
     Route: 042
     Dates: end: 201003
  6. INEXIUM [Concomitant]
  7. BI-PROFENID [Concomitant]
  8. IXPRIM [Concomitant]
  9. BETATOP [Concomitant]

REACTIONS (4)
  - Dyspnoea [Not Recovered/Not Resolved]
  - Urticaria [Not Recovered/Not Resolved]
  - Angioedema [Not Recovered/Not Resolved]
  - Medication error [Unknown]
